FAERS Safety Report 6258630-0 (Version None)
Quarter: 2009Q3

REPORT INFORMATION
  Report Type: 
  Country: None (occurrence: None)
  Receive Date: 20090707
  Receipt Date: 20090625
  Transmission Date: 20100115
  Serious: Yes (Hospitalization, Congenital Anomaly)
  Sender: FDA-Public Use
  Company Number: AU-ASTRAZENECA-2009SE03480

PATIENT
  Age: 20454 Day
  Sex: Male

DRUGS (3)
  1. ARIMIDEX [Suspect]
     Route: 048
     Dates: start: 20080215, end: 20080505
  2. LAMISIL [Suspect]
     Indication: SYSTEMIC MYCOSIS
     Dates: start: 20080314, end: 20080505
  3. TROCHE [Suspect]
     Dosage: TESTOSTERONE 150MG, PROGESTERONE 30MG DHEA 150MG, CHRYSIN 10MG
     Dates: start: 20080115, end: 20080505

REACTIONS (6)
  - ABDOMINAL DISCOMFORT [None]
  - ABDOMINAL DISTENSION [None]
  - BODY TEMPERATURE [None]
  - HEADACHE [None]
  - INFLUENZA [None]
  - NAUSEA [None]
